FAERS Safety Report 15122961 (Version 4)
Quarter: 2019Q1

REPORT INFORMATION
  Report Type: Report from Study
  Country: US (occurrence: US)
  Receive Date: 20180709
  Receipt Date: 20190213
  Transmission Date: 20190417
  Serious: Yes (Hospitalization)
  Sender: FDA-Public Use
  Company Number: US-ACTELION-A-US2015-117976

PATIENT
  Age: 54 Year
  Sex: Male
  Weight: 83.9 kg

DRUGS (6)
  1. VELETRI [Suspect]
     Active Substance: EPOPROSTENOL
     Indication: PULMONARY HYPERTENSION
     Dosage: 93 NG/KG, PER MIN
     Route: 042
  2. VELETRI [Suspect]
     Active Substance: EPOPROSTENOL
     Dosage: 78 NG/KG, PER MIN
     Route: 042
     Dates: start: 20110408
  3. ADCIRCA [Concomitant]
     Active Substance: TADALAFIL
  4. COUMADIN [Concomitant]
     Active Substance: WARFARIN SODIUM
  5. VELETRI [Suspect]
     Active Substance: EPOPROSTENOL
     Dosage: 99 NG/KG, PER MIN
     Route: 042
     Dates: start: 20110408
  6. ELIQUIS [Concomitant]
     Active Substance: APIXABAN

REACTIONS (35)
  - Catheter site discharge [Unknown]
  - Pulmonary hypertension [Unknown]
  - Product dose omission [Recovered/Resolved]
  - Skin abrasion [Unknown]
  - Abdominal discomfort [Unknown]
  - Catheter site mass [Unknown]
  - Catheter site dryness [Unknown]
  - Catheter management [Recovered/Resolved]
  - Secretion discharge [Unknown]
  - Catheter site infection [Recovered/Resolved]
  - Headache [Not Recovered/Not Resolved]
  - Retching [Not Recovered/Not Resolved]
  - Device malfunction [Unknown]
  - Pneumonia [Unknown]
  - Insomnia [Unknown]
  - Device occlusion [Unknown]
  - Device alarm issue [Unknown]
  - Dyspnoea [Recovered/Resolved]
  - Central venous catheterisation [Recovered/Resolved]
  - Viral infection [Unknown]
  - Catheter site inflammation [Unknown]
  - Gait disturbance [Unknown]
  - Lethargy [Unknown]
  - Arthritis bacterial [Unknown]
  - Dizziness [Not Recovered/Not Resolved]
  - Device dislocation [Recovered/Resolved]
  - Infection [Unknown]
  - Nervousness [Unknown]
  - Feeling abnormal [Not Recovered/Not Resolved]
  - Catheter site pruritus [Unknown]
  - Catheter site exfoliation [Unknown]
  - Catheter site related reaction [Unknown]
  - Influenza [Not Recovered/Not Resolved]
  - Decreased appetite [Not Recovered/Not Resolved]
  - Abdominal pain upper [Unknown]

NARRATIVE: CASE EVENT DATE: 20160708
